FAERS Safety Report 23706699 (Version 1)
Quarter: 2024Q2

REPORT INFORMATION
  Report Type: Spontaneous
  Country: CN (occurrence: CN)
  Receive Date: 20240404
  Receipt Date: 20240404
  Transmission Date: 20240716
  Serious: Yes (Hospitalization, Other)
  Sender: FDA-Public Use
  Company Number: CN-PFIZER INC-PV202400043399

PATIENT
  Age: 59 Year
  Sex: Female
  Weight: 50 kg

DRUGS (3)
  1. EPIRUBICIN [Suspect]
     Active Substance: EPIRUBICIN
     Indication: Chemotherapy
     Dosage: 12 MG, 1X/DAY
     Route: 041
     Dates: start: 20240323, end: 20240325
  2. ETOPOSIDE [Suspect]
     Active Substance: ETOPOSIDE
     Indication: Chemotherapy
     Dosage: 0.037 G, 1X/DAY
     Route: 041
     Dates: start: 20240323, end: 20240325
  3. VINDESINE SULFATE [Suspect]
     Active Substance: VINDESINE SULFATE
     Indication: Chemotherapy
     Dosage: 0.4 MG, 1X/DAY
     Route: 041
     Dates: start: 20240323, end: 20240325

REACTIONS (9)
  - Myelosuppression [Recovering/Resolving]
  - Renal failure [Recovered/Resolved]
  - Tumour lysis syndrome [Unknown]
  - Oxygen saturation decreased [Unknown]
  - Hyponatraemia [Recovered/Resolved]
  - Blood glucose increased [Unknown]
  - Somnolence [Unknown]
  - Dizziness [Unknown]
  - Hypoproteinaemia [Unknown]

NARRATIVE: CASE EVENT DATE: 20240325
